FAERS Safety Report 9161586 (Version 2)
Quarter: 2013Q2

REPORT INFORMATION
  Report Type: Spontaneous
  Country: US (occurrence: US)
  Receive Date: 20130313
  Receipt Date: 20130424
  Transmission Date: 20140414
  Serious: Yes (Other)
  Sender: FDA-Public Use
  Company Number: US-009507513-1303USA005560

PATIENT
  Sex: Male

DRUGS (3)
  1. PEGINTRON [Suspect]
     Indication: HEPATITIS C
     Dosage: UNK
     Dates: start: 20130308, end: 20130329
  2. REBETOL [Suspect]
     Indication: HEPATITIS C
     Dosage: UNK
     Dates: start: 20130308, end: 20130329
  3. VICTRELIS [Suspect]
     Indication: HEPATITIS C
     Dosage: UNK
     Dates: start: 20130405, end: 20130405

REACTIONS (6)
  - Thyroid disorder [Unknown]
  - Hyperhidrosis [Unknown]
  - Influenza like illness [Unknown]
  - Chills [Unknown]
  - Fatigue [Unknown]
  - Malaise [Unknown]
